FAERS Safety Report 9947568 (Version 1)
Quarter: 2014Q1

REPORT INFORMATION
  Report Type: Report from Study
  Country: US (occurrence: US)
  Receive Date: 20140303
  Receipt Date: 20140303
  Transmission Date: 20141002
  Serious: No
  Sender: FDA-Public Use
  Company Number: US-ABBVIE-13P-163-1065159-00

PATIENT
  Age: 43 Year
  Sex: Female
  Weight: 109.87 kg

DRUGS (10)
  1. HUMIRA [Suspect]
     Indication: PSORIASIS
     Dates: start: 201202
  2. LANTUS [Concomitant]
     Indication: TYPE 1 DIABETES MELLITUS
  3. METFORMIN [Concomitant]
     Indication: TYPE 1 DIABETES MELLITUS
  4. CLINIPRIL [Concomitant]
     Indication: HYPERTENSION
  5. GLIMEPIRIDE [Concomitant]
     Indication: TYPE 1 DIABETES MELLITUS
  6. POTASSIUM [Concomitant]
     Indication: MINERAL SUPPLEMENTATION
  7. BENEFIBER FIBER SUPPLEMENT [Concomitant]
     Indication: CONSTIPATION
  8. IRON [Concomitant]
     Indication: MINERAL SUPPLEMENTATION
  9. VITAMIN [Concomitant]
     Indication: VITAMIN SUPPLEMENTATION
  10. VITAMIN D [Concomitant]
     Indication: VITAMIN SUPPLEMENTATION

REACTIONS (3)
  - Nail discolouration [Not Recovered/Not Resolved]
  - Onychalgia [Not Recovered/Not Resolved]
  - Muscle spasms [Not Recovered/Not Resolved]
